FAERS Safety Report 20721347 (Version 1)
Quarter: 2022Q2

REPORT INFORMATION
  Report Type: Spontaneous
  Country: US (occurrence: None)
  Receive Date: 20220416
  Receipt Date: 20220416
  Transmission Date: 20220721
  Serious: Yes (Other)
  Sender: FDA-Public Use
  Company Number: None

PATIENT
  Age: 54 Year
  Sex: Female
  Weight: 57.15 kg

DRUGS (1)
  1. CIPROFLOXACIN [Suspect]
     Active Substance: CIPROFLOXACIN
     Indication: Urinary tract infection
     Dates: start: 20220411, end: 20220415

REACTIONS (8)
  - Arthralgia [None]
  - Musculoskeletal pain [None]
  - Pain [None]
  - Hypoaesthesia [None]
  - Paraesthesia [None]
  - Gait inability [None]
  - Joint swelling [None]
  - Immobile [None]

NARRATIVE: CASE EVENT DATE: 20220414
